FAERS Safety Report 16376234 (Version 1)
Quarter: 2019Q2

REPORT INFORMATION
  Report Type: Spontaneous
  Country: FR (occurrence: FR)
  Receive Date: 20190531
  Receipt Date: 20190531
  Transmission Date: 20190711
  Serious: Yes (Other)
  Sender: FDA-Public Use
  Company Number: FR-AUROBINDO-AUR-APL-2019-004993

PATIENT

DRUGS (1)
  1. KETOPROFEN. [Suspect]
     Active Substance: KETOPROFEN
     Indication: MUSCULOSKELETAL DISCOMFORT
     Dosage: UNK
     Route: 065

REACTIONS (4)
  - Ejection fraction decreased [Unknown]
  - Contraindicated product prescribed [Unknown]
  - Cardiac failure [Unknown]
  - Infarction [Unknown]
